FAERS Safety Report 6238575-2 (Version None)
Quarter: 2009Q2

REPORT INFORMATION
  Report Type: 
  Country: None (occurrence: None)
  Receive Date: 20090618
  Receipt Date: 20090610
  Transmission Date: 20091009
  Serious: Yes (Hospitalization)
  Sender: FDA-Public Use
  Company Number: 2009JP003653

PATIENT
  Age: 42 Year
  Sex: Male

DRUGS (4)
  1. TACROLIMUS [Suspect]
     Indication: RENAL TRANSPLANT
     Dosage: 3.5 MG, D, ORAL, 2 MG, D, ORAL
     Route: 048
     Dates: end: 20090610
  2. TACROLIMUS [Suspect]
     Indication: RENAL TRANSPLANT
     Dosage: 3.5 MG, D, ORAL, 2 MG, D, ORAL
     Route: 048
     Dates: start: 20080925
  3. PREDNISONE TAB [Concomitant]
  4. MYCOPHENOLATE MOFETIL [Concomitant]

REACTIONS (2)
  - BONE LESION [None]
  - BONE PAIN [None]
